FAERS Safety Report 25761444 (Version 1)
Quarter: 2025Q3

REPORT INFORMATION
  Report Type: Spontaneous
  Country: EU (occurrence: None)
  Receive Date: 20250903
  Receipt Date: 20250903
  Transmission Date: 20251021
  Serious: Yes (Disabling)
  Sender: FDA-CTU
  Company Number: None

PATIENT
  Age: 27 Year
  Sex: Female
  Weight: 61 kg

DRUGS (4)
  1. ESCITALOPRAM [Suspect]
     Active Substance: ESCITALOPRAM OXALATE
     Indication: Schizotypal personality disorder
     Dosage: OTHER QUANTITY : 1 TABLET(S);?FREQUENCY : DAILY;?
     Route: 048
  2. IRON [Concomitant]
     Active Substance: IRON
  3. OMEGA 3 [Concomitant]
     Active Substance: CAPSAICIN
  4. VITAMIN D NOS [Concomitant]
     Active Substance: CHOLECALCIFEROL\ERGOCALCIFEROL

REACTIONS (16)
  - Somatic dysfunction [None]
  - Insomnia [None]
  - Emotional disorder [None]
  - Anorgasmia [None]
  - Therapy cessation [None]
  - Cognitive disorder [None]
  - Amnesia [None]
  - Confusional state [None]
  - Memory impairment [None]
  - Mental impairment [None]
  - Visual impairment [None]
  - Decreased appetite [None]
  - Disturbance in attention [None]
  - Stress [None]
  - Anxiety [None]
  - Fear [None]

NARRATIVE: CASE EVENT DATE: 20250110
